FAERS Safety Report 9373161 (Version 1)
Quarter: 2013Q2

REPORT INFORMATION
  Report Type: Spontaneous
  Country: US (occurrence: US)
  Receive Date: 20130627
  Receipt Date: 20130627
  Transmission Date: 20140414
  Serious: No
  Sender: FDA-Public Use
  Company Number: US-PFIZER INC-2013188068

PATIENT
  Age: 51 Year
  Sex: Female
  Weight: 72.56 kg

DRUGS (1)
  1. LIPITOR [Suspect]
     Indication: BLOOD CHOLESTEROL INCREASED
     Dosage: UNK
     Route: 048
     Dates: start: 2003, end: 2005

REACTIONS (2)
  - Myalgia [Recovered/Resolved]
  - Drug intolerance [Unknown]
